FAERS Safety Report 25273009 (Version 2)
Quarter: 2025Q2

REPORT INFORMATION
  Report Type: Spontaneous
  Country: US (occurrence: US)
  Receive Date: 20250506
  Receipt Date: 20250616
  Transmission Date: 20250717
  Serious: No
  Sender: GLAXOSMITHKLINE
  Company Number: US-GSK-US2025051682

PATIENT
  Sex: Female

DRUGS (1)
  1. NUCALA [Suspect]
     Active Substance: MEPOLIZUMAB
     Indication: Polyp

REACTIONS (3)
  - Dysphonia [Recovering/Resolving]
  - Frontal sinus operation [Recovering/Resolving]
  - Product dose omission issue [Unknown]
